FAERS Safety Report 21395418 (Version 1)
Quarter: 2022Q3

REPORT INFORMATION
  Report Type: Spontaneous
  Country: BR (occurrence: BR)
  Receive Date: 20220930
  Receipt Date: 20220930
  Transmission Date: 20221026
  Serious: Yes (Other)
  Sender: FDA-Public Use
  Company Number: BR-CELLTRION INC.-2022BR015654

PATIENT

DRUGS (9)
  1. INFLIXIMAB [Suspect]
     Active Substance: INFLIXIMAB
     Indication: Colitis
     Dosage: 5 AMPOULES EVERY 2 MONTHS
     Route: 042
  2. ARIMIDEX [Concomitant]
     Active Substance: ANASTROZOLE
     Indication: Breast cancer
     Dosage: 1 MILLIGRAM, 1 PILL PER DAY
     Route: 048
     Dates: start: 2021
  3. ENALAPRIL MALEATE [Concomitant]
     Active Substance: ENALAPRIL MALEATE
     Indication: Hypertension
     Dosage: 10 MG, 2 PILLS PER DAY
     Route: 048
     Dates: start: 2012
  4. ATENOLOL [Concomitant]
     Active Substance: ATENOLOL
     Indication: Hyperthyroidism
     Dosage: 20 MILLIGRAM, 1 PILL PER DAY
     Route: 048
     Dates: start: 2012
  5. ROSUVASTATIN [Concomitant]
     Active Substance: ROSUVASTATIN
     Indication: Arrhythmia
     Dosage: 10 MILLIGRAM. 1 PILL PER DAY
     Route: 048
     Dates: start: 2012
  6. AMILORIDE HYDROCHLORIDE\CHLORTHALIDONE [Concomitant]
     Active Substance: AMILORIDE HYDROCHLORIDE\CHLORTHALIDONE
     Indication: Hypertension
     Dosage: DIUPRESS 25MG + 5MG, 1 PILL PER DAY
     Route: 048
     Dates: start: 2012
  7. VIT D [VITAMIN D NOS] [Concomitant]
     Indication: Hypertension
     Dosage: 400 MILLIGRAM, 1 PILL PER DAY
     Dates: start: 2012
  8. OSCAL D [CALCIUM CARBONATE;VITAMIN D NOS] [Concomitant]
     Indication: Breast cancer
     Dosage: 500 MILLIGRAM, 1 PILL PER DAY
     Dates: start: 2021
  9. PURAN [Concomitant]
     Active Substance: LEVOTHYROXINE SODIUM
     Indication: Hyperthyroidism
     Dosage: 4 MILLIGRAM, 1 PILL PER DAY
     Route: 048
     Dates: start: 2012

REACTIONS (2)
  - Diarrhoea [Unknown]
  - Treatment delayed [Unknown]
